FAERS Safety Report 4384970-6 (Version None)
Quarter: 2004Q2

REPORT INFORMATION
  Report Type: 
  Country: None (occurrence: None)
  Receive Date: 20040625
  Receipt Date: 20040616
  Transmission Date: 20050107
  Serious: Yes (Hospitalization)
  Sender: FDA-Public Use
  Company Number: PHRM2004FR02141

PATIENT
  Age: 59 Year
  Sex: Male

DRUGS (1)
  1. VOLTAREN [Suspect]
     Indication: ARTICULAR DISC DISORDER
     Dosage: UNK, PRN
     Route: 048
     Dates: end: 20040331

REACTIONS (6)
  - ABDOMINAL PAIN UPPER [None]
  - AGITATION POSTOPERATIVE [None]
  - DELIRIUM TREMENS [None]
  - DUODENAL ULCER PERFORATION [None]
  - PERITONITIS [None]
  - WOUND EVISCERATION [None]
